FAERS Safety Report 7651768-2 (Version None)
Quarter: 2011Q3

REPORT INFORMATION
  Report Type: 
  Country: None (occurrence: None)
  Receive Date: 20110802
  Receipt Date: 20110726
  Transmission Date: 20111222
  Serious: Yes (Hospitalization)
  Sender: FDA-Public Use
  Company Number: US-RB-028788-11

PATIENT
  Age: 63 Year
  Sex: Male

DRUGS (1)
  1. SUBOXONE [Suspect]
     Indication: DRUG DEPENDENCE
     Dosage: SUBLINGUAL FILM; TOOK 150 FILMS OVER A 6 WEEK PERIOD
     Route: 060
     Dates: start: 20110601, end: 20110701

REACTIONS (6)
  - MUSCLE SPASMS [None]
  - BURNING SENSATION [None]
  - DISTURBANCE IN ATTENTION [None]
  - DRUG WITHDRAWAL SYNDROME [None]
  - OFF LABEL USE [None]
  - DIZZINESS [None]
